FAERS Safety Report 22134730 (Version 2)
Quarter: 2024Q3

REPORT INFORMATION
  Report Type: Report from Study
  Country: US (occurrence: US)
  Receive Date: 20230324
  Receipt Date: 20240926
  Transmission Date: 20241017
  Serious: Yes (Hospitalization)
  Sender: GLAXOSMITHKLINE
  Company Number: US-GLAXOSMITHKLINE-US2023AMR009417

PATIENT

DRUGS (1)
  1. NIRAPARIB [Suspect]
     Active Substance: NIRAPARIB
     Indication: Ovarian cancer
     Dosage: 200 MG, QD
     Dates: start: 202301, end: 20230302

REACTIONS (4)
  - Platelet count decreased [Not Recovered/Not Resolved]
  - Stomatitis [Recovering/Resolving]
  - Throat lesion [Unknown]
  - Red blood cell count decreased [Not Recovered/Not Resolved]
